FAERS Safety Report 4538362-7 (Version None)
Quarter: 2004Q4

REPORT INFORMATION
  Report Type: 
  Country: None (occurrence: None)
  Receive Date: 20041221
  Receipt Date: 20041206
  Transmission Date: 20050328
  Serious: No
  Sender: FDA-Public Use
  Company Number: 2004AP06256

PATIENT
  Sex: Female

DRUGS (1)
  1. MEROPEN [Suspect]
     Dates: start: 20040130

REACTIONS (1)
  - ANAPHYLACTIC SHOCK [None]
